FAERS Safety Report 7539459-X (Version None)
Quarter: 2011Q2

REPORT INFORMATION
  Report Type: 
  Country: None (occurrence: None)
  Receive Date: 20110610
  Receipt Date: 20110601
  Transmission Date: 20111010
  Serious: Yes (Hospitalization)
  Sender: FDA-Public Use
  Company Number: FR-PFIZER INC-2011123581

PATIENT
  Age: 86 Year
  Sex: Female

DRUGS (10)
  1. CORDARONE [Suspect]
     Dosage: 200 MG, 1X/DAY
     Route: 048
  2. ACETAMINOPHEN [Concomitant]
     Dosage: UNK
  3. LASIX [Suspect]
     Dosage: 40 MG, 1X/DAY
     Route: 048
  4. BISOPROLOL FUMARATE [Suspect]
     Dosage: 10 MG, 2X/DAY
     Route: 048
     Dates: end: 20110101
  5. IMOVANE [Suspect]
     Dosage: 7.5 MG, DAILY
     Route: 048
  6. HALDOL [Suspect]
     Indication: DELIRIUM
     Dosage: 2 MG/ML (10 GTTS)
     Route: 048
     Dates: start: 20110301, end: 20110331
  7. INDAPAMIDE [Suspect]
     Dosage: 1.5 MG, DAILY
     Route: 048
     Dates: end: 20110406
  8. ASPIRIN [Concomitant]
     Dosage: UNK
  9. OMEPRAZOLE [Concomitant]
     Dosage: UNK
     Dates: start: 20080101, end: 20110401
  10. VOLTAREN [Concomitant]

REACTIONS (6)
  - FALL [None]
  - PYELONEPHRITIS ACUTE [None]
  - ESCHERICHIA INFECTION [None]
  - DELIRIUM [None]
  - DEHYDRATION [None]
  - HYPERTENSIVE CRISIS [None]
